FAERS Safety Report 13871104 (Version 1)
Quarter: 2017Q3

REPORT INFORMATION
  Report Type: Spontaneous
  Country: US (occurrence: US)
  Receive Date: 20170816
  Receipt Date: 20170816
  Transmission Date: 20171127
  Serious: No
  Sender: FDA-Public Use
  Company Number: US-GLAXOSMITHKLINE-US2017126285

PATIENT
  Age: 74 Year
  Sex: Female

DRUGS (10)
  1. FLOVENT DISKUS [Suspect]
     Active Substance: FLUTICASONE PROPIONATE
     Indication: CHRONIC OBSTRUCTIVE PULMONARY DISEASE
     Dosage: 1 PUFF(S), BID
     Dates: start: 201706
  2. FENOFIBRATE. [Concomitant]
     Active Substance: FENOFIBRATE
  3. METFORMIN [Concomitant]
     Active Substance: METFORMIN HYDROCHLORIDE
  4. VITAMIN C [Concomitant]
     Active Substance: ASCORBIC ACID
  5. FISH OIL [Concomitant]
     Active Substance: FISH OIL
  6. OMEPRAZOLE. [Concomitant]
     Active Substance: OMEPRAZOLE
  7. CINNAMON. [Concomitant]
     Active Substance: CINNAMON
  8. CRANBERRY. [Concomitant]
     Active Substance: CRANBERRY
  9. ASPIRIN (BABY) [Concomitant]
     Active Substance: ASPIRIN
  10. LOSARTAN AND HYDROCHLOROTHIAZIDE [Concomitant]
     Active Substance: HYDROCHLOROTHIAZIDE\LOSARTAN POTASSIUM

REACTIONS (4)
  - Cough [Not Recovered/Not Resolved]
  - Drug administration error [Unknown]
  - Oropharyngeal pain [Unknown]
  - Poor quality sleep [Unknown]

NARRATIVE: CASE EVENT DATE: 201708
